FAERS Safety Report 13717141 (Version 1)
Quarter: 2017Q3

REPORT INFORMATION
  Report Type: Spontaneous
  Country: US (occurrence: US)
  Receive Date: 20170704
  Receipt Date: 20170704
  Transmission Date: 20171127
  Serious: Yes (Disabling)
  Sender: FDA-Public Use
  Company Number: None

PATIENT
  Age: 60 Year
  Sex: Male
  Weight: 78.75 kg

DRUGS (1)
  1. CIPROFLOXIN 500MG [Suspect]
     Active Substance: CIPROFLOXACIN
     Indication: URINARY TRACT INFECTION
     Dosage: ?          QUANTITY:1 TABLET(S);?
     Route: 048
     Dates: start: 20151005, end: 20151015

REACTIONS (4)
  - Dysstasia [None]
  - Musculoskeletal disorder [None]
  - Tendonitis [None]
  - Tendon disorder [None]

NARRATIVE: CASE EVENT DATE: 20151015
